FAERS Safety Report 9623993 (Version 1)
Quarter: 2013Q4

REPORT INFORMATION
  Report Type: Spontaneous
  Country: US (occurrence: US)
  Receive Date: 20131015
  Receipt Date: 20131015
  Transmission Date: 20140711
  Serious: No
  Sender: FDA-Public Use
  Company Number: US-BAUSCH-BL-2013-004644

PATIENT
  Age: 77 Year
  Sex: Female

DRUGS (2)
  1. LATANOPROST OPHTHALMIC SOLUTION 0.005% [Suspect]
     Indication: GLAUCOMA
     Dosage: 1 DROP IN LEFT EYE, ONCE DAILY
     Route: 047
     Dates: start: 201307, end: 201307
  2. LATANOPROST OPHTHALMIC SOLUTION 0.005% [Suspect]
     Dosage: 1 DROPS IN RIGHT EYE, ONCE DAILY
     Route: 047
     Dates: start: 201307, end: 201307

REACTIONS (2)
  - Ocular hyperaemia [Recovered/Resolved]
  - Eye pruritus [Recovered/Resolved]
